FAERS Safety Report 6916488-8 (Version None)
Quarter: 2010Q3

REPORT INFORMATION
  Report Type: 
  Country: None (occurrence: None)
  Receive Date: 20100810
  Receipt Date: 20100804
  Transmission Date: 20110219
  Serious: Yes (Death, Hospitalization, Other)
  Sender: FDA-Public Use
  Company Number: PHHY2010CA39528

PATIENT
  Age: 24 Year
  Sex: Female

DRUGS (7)
  1. CYCLOSPORINE [Suspect]
     Indication: LUNG TRANSPLANT
     Dosage: 5 MG/KG, BID
     Route: 048
     Dates: start: 19960301, end: 20011001
  2. AZATHIOPRINE [Suspect]
     Indication: LUNG TRANSPLANT
     Dosage: 1 MG/KG/DAY
  3. PREDNISONE [Suspect]
     Indication: LUNG TRANSPLANT
     Dosage: 0.5 MG/KG/DAY
  4. TACROLIMUS [Suspect]
     Indication: LUNG TRANSPLANT
  5. CEFTAZIDIME [Concomitant]
     Route: 042
  6. TOBRAMYCIN [Concomitant]
     Route: 048
  7. CHLORAMPHENICOL [Concomitant]

REACTIONS (16)
  - BURKHOLDERIA CEPACIA COMPLEX INFECTION [None]
  - BURKHOLDERIA CEPACIA COMPLEX SEPSIS [None]
  - COLECTOMY [None]
  - COLON CANCER METASTATIC [None]
  - COUGH [None]
  - HAEMODIALYSIS [None]
  - LUNG ABSCESS [None]
  - LUNG INFILTRATION [None]
  - LUNG WEDGE RESECTION [None]
  - NEPHROPATHY TOXIC [None]
  - OBLITERATIVE BRONCHIOLITIS [None]
  - PLEURITIC PAIN [None]
  - PNEUMONIA [None]
  - PYREXIA [None]
  - RENAL FAILURE CHRONIC [None]
  - THORACOTOMY [None]
